FAERS Safety Report 4347190-7 (Version None)
Quarter: 2004Q2

REPORT INFORMATION
  Report Type: 
  Country: None (occurrence: None)
  Receive Date: 20040422
  Receipt Date: 20040401
  Transmission Date: 20050107
  Serious: Yes (Death, Hospitalization)
  Sender: FDA-Public Use
  Company Number: JP_040402923

PATIENT
  Age: 63 Year
  Sex: Male
  Weight: 71 kg

DRUGS (4)
  1. GEMZAR [Suspect]
     Indication: PANCREATIC CARCINOMA
     Dosage: 1000 MG OTHER
     Dates: start: 20030620, end: 20030718
  2. FLUOROURACIL [Concomitant]
  3. ISOVORIN (CALCIUM LEVOFOLINATE) [Concomitant]
  4. MITOMYCIN-C BULK POWDER [Concomitant]

REACTIONS (6)
  - ANAEMIA [None]
  - GASTROINTESTINAL HAEMORRHAGE [None]
  - HEPATIC FAILURE [None]
  - PLATELET COUNT DECREASED [None]
  - PYREXIA [None]
  - TUMOUR NECROSIS [None]
